FAERS Safety Report 10671607 (Version 1)
Quarter: 2014Q4

REPORT INFORMATION
  Report Type: Spontaneous
  Country: US (occurrence: US)
  Receive Date: 20141223
  Receipt Date: 20141223
  Transmission Date: 20150529
  Serious: Yes (Other)
  Sender: FDA-Public Use
  Company Number: US-PFIZER INC-2014345769

PATIENT
  Age: 85 Year
  Sex: Female

DRUGS (1)
  1. ANBESOL REGULAR STRENGTH GEL [Suspect]
     Active Substance: BENZOCAINE
     Indication: NEURALGIA
     Dosage: UNK

REACTIONS (2)
  - Intentional product misuse [Unknown]
  - Drug dependence [Unknown]
